FAERS Safety Report 8639707 (Version 4)
Quarter: 2013Q4

REPORT INFORMATION
  Report Type: Spontaneous
  Country: US (occurrence: US)
  Receive Date: 20120627
  Receipt Date: 20131105
  Transmission Date: 20140711
  Serious: Yes (Hospitalization, Disabling, Other)
  Sender: FDA-Public Use
  Company Number: US-009507513-1206USA04212

PATIENT
  Age: 84 Year
  Sex: Female
  Weight: 60.77 kg

DRUGS (9)
  1. JANUVIA [Suspect]
     Indication: TYPE 2 DIABETES MELLITUS
     Dosage: 100 MG, QD
     Route: 048
     Dates: start: 20070727, end: 20100706
  2. ISOSORBIDE MONONITRATE [Concomitant]
     Dosage: UNK MG, UNK
  3. LOTRISONE [Concomitant]
  4. SIMVASTATIN [Concomitant]
     Dosage: UNK MG, UNK
  5. DIOVAN HCT [Concomitant]
     Dosage: UNK MG, UNK
  6. ATIVAN [Concomitant]
     Dosage: UNK MG, UNK
  7. METFORMIN HYDROCHLORIDE [Concomitant]
     Dosage: UNK MG, UNK
  8. ATENOLOL [Concomitant]
     Dosage: UNK MG, UNK
  9. PLAVIX [Concomitant]
     Dosage: UNK MG, UNK

REACTIONS (3)
  - Pancreatic carcinoma [Not Recovered/Not Resolved]
  - Cough [Unknown]
  - Vulvovaginal pruritus [Unknown]
